FAERS Safety Report 7764661-1 (Version None)
Quarter: 2011Q3

REPORT INFORMATION
  Report Type: 
  Country: None (occurrence: None)
  Receive Date: 20110921
  Receipt Date: 20110915
  Transmission Date: 20111222
  Serious: Yes (Life-Threatening, Other)
  Sender: FDA-Public Use
  Company Number: PHEH2011US03415

PATIENT
  Age: 84 Year
  Sex: Male

DRUGS (10)
  1. VITAMIN D [Concomitant]
     Dosage: 50000 IU, QW
  2. FLECAINIDE ACETATE [Concomitant]
     Dosage: 50 MG, UNK
  3. FOLIC ACID [Concomitant]
     Dosage: UNK UKN, UNK
  4. EXELON [Suspect]
     Indication: MEMORY IMPAIRMENT
     Dosage: 9.5 MG/24 HOURS
     Route: 062
  5. HYDROCODONE [Concomitant]
     Dosage: UNK UKN, UNK
  6. TEMAZEPAM [Concomitant]
     Dosage: 30 MG, UNK
  7. MIDODRINE HYDROCHLORIDE [Concomitant]
     Dosage: 5 MG, UNK
  8. BUPROPION HCL [Concomitant]
     Dosage: 150 MG, Q12H
  9. GABAPENTIN [Concomitant]
     Dosage: 400 MG, UNK
  10. COUMADIN [Concomitant]
     Dosage: 7.5 MG, UNK

REACTIONS (12)
  - MEMORY IMPAIRMENT [None]
  - CONFUSIONAL STATE [None]
  - VASCULAR DEMENTIA [None]
  - ABASIA [None]
  - DEPRESSION [None]
  - NERVE STIMULATION TEST ABNORMAL [None]
  - BOWEL MOVEMENT IRREGULARITY [None]
  - PAIN [None]
  - ASTHENIA [None]
  - DYSPHEMIA [None]
  - FEELING ABNORMAL [None]
  - DRUG INEFFECTIVE [None]
